FAERS Safety Report 12916780 (Version 1)
Quarter: 2016Q4

REPORT INFORMATION
  Report Type: Spontaneous
  Country: US (occurrence: US)
  Receive Date: 20161107
  Receipt Date: 20161107
  Transmission Date: 20170207
  Serious: No
  Sender: FDA-Public Use
  Company Number: US-JAZZ-2016-US-017268

PATIENT
  Sex: Female

DRUGS (27)
  1. COLCHICINE. [Concomitant]
     Active Substance: COLCHICINE
  2. LASIX [Concomitant]
     Active Substance: FUROSEMIDE
  3. ASACOL [Concomitant]
     Active Substance: MESALAMINE
  4. GAS-X [Concomitant]
     Active Substance: DIMETHICONE
  5. TRAMADOL HCL [Concomitant]
     Active Substance: TRAMADOL HYDROCHLORIDE
  6. PLAVIX [Concomitant]
     Active Substance: CLOPIDOGREL BISULFATE
  7. ASPIRIN. [Concomitant]
     Active Substance: ASPIRIN
  8. BENICAR [Concomitant]
     Active Substance: OLMESARTAN MEDOXOMIL
  9. MODAFINIL. [Concomitant]
     Active Substance: MODAFINIL
  10. OMEPRAZOLE. [Concomitant]
     Active Substance: OMEPRAZOLE
  11. BEE POLLEN [Concomitant]
     Active Substance: BEE POLLEN
  12. CYMBALTA [Concomitant]
     Active Substance: DULOXETINE HYDROCHLORIDE
  13. TYLENOL ARTHRITIS PAIN [Concomitant]
     Active Substance: ACETAMINOPHEN
  14. ZOCOR [Concomitant]
     Active Substance: SIMVASTATIN
  15. XYREM [Suspect]
     Active Substance: SODIUM OXYBATE
     Dosage: 3 G, BID
     Route: 048
     Dates: start: 201302, end: 201508
  16. CHLORTHALIDONE. [Concomitant]
     Active Substance: CHLORTHALIDONE
  17. CLONAZEPAM. [Concomitant]
     Active Substance: CLONAZEPAM
  18. FISH OIL [Concomitant]
     Active Substance: FISH OIL
  19. NORCO [Concomitant]
     Active Substance: ACETAMINOPHEN\HYDROCODONE BITARTRATE
  20. ACETAMINOPHEN. [Concomitant]
     Active Substance: ACETAMINOPHEN
  21. ATENOLOL. [Concomitant]
     Active Substance: ATENOLOL
  22. XYREM [Suspect]
     Active Substance: SODIUM OXYBATE
     Indication: NARCOLEPSY
     Dosage: 2.5 G, BID
     Route: 048
     Dates: start: 201212, end: 201302
  23. MECLIZINE [Concomitant]
     Active Substance: MECLIZINE HYDROCHLORIDE
  24. PEPCID [Concomitant]
     Active Substance: FAMOTIDINE
  25. XYREM [Suspect]
     Active Substance: SODIUM OXYBATE
     Dosage: 4.5 G, BID
     Dates: start: 201508
  26. FLONASE [Concomitant]
     Active Substance: FLUTICASONE PROPIONATE
  27. MIRAPEX [Concomitant]
     Active Substance: PRAMIPEXOLE DIHYDROCHLORIDE

REACTIONS (4)
  - Feeling drunk [Unknown]
  - Dizziness [Unknown]
  - Vertigo [Unknown]
  - Fall [Unknown]
